FAERS Safety Report 4980002-7 (Version None)
Quarter: 2006Q2

REPORT INFORMATION
  Report Type: 
  Country: None (occurrence: None)
  Receive Date: 20060421
  Receipt Date: 20050930
  Transmission Date: 20061013
  Serious: Yes (Hospitalization)
  Sender: FDA-Public Use
  Company Number: US-MERCK-0510USA02158

PATIENT
  Age: 44 Year
  Sex: Male
  Weight: 127 kg

DRUGS (6)
  1. VIOXX [Suspect]
     Indication: ARTHRITIS
     Route: 048
     Dates: start: 19990101
  2. VIOXX [Suspect]
     Route: 048
     Dates: start: 20030826, end: 20030901
  3. VIOXX [Suspect]
     Route: 048
     Dates: end: 20030101
  4. VIOXX [Suspect]
     Indication: ARTHRALGIA
     Route: 048
     Dates: start: 19990101
  5. VIOXX [Suspect]
     Route: 048
     Dates: start: 20030826, end: 20030901
  6. VIOXX [Suspect]
     Route: 048
     Dates: end: 20030101

REACTIONS (20)
  - ANAL FISSURE [None]
  - ANGINA PECTORIS [None]
  - BRONCHITIS ACUTE [None]
  - CARDIOMEGALY [None]
  - CELLULITIS [None]
  - CHEST PAIN [None]
  - CHRONIC OBSTRUCTIVE PULMONARY DISEASE [None]
  - CORONARY ARTERY DISEASE [None]
  - DERMAL CYST [None]
  - DIABETES MELLITUS [None]
  - DYSPNOEA [None]
  - EXOSTOSIS [None]
  - GANGLION [None]
  - HAEMORRHOIDS [None]
  - MITRAL VALVE PROLAPSE [None]
  - NEUROPATHY PERIPHERAL [None]
  - NOCTURIA [None]
  - PERIANAL ABSCESS [None]
  - REFUSAL OF TREATMENT BY PATIENT [None]
  - UMBILICAL HERNIA [None]
